FAERS Safety Report 10861284 (Version 1)
Quarter: 2015Q1

REPORT INFORMATION
  Report Type: Spontaneous
  Country: US (occurrence: None)
  Receive Date: 20150218
  Receipt Date: 20150218
  Transmission Date: 20150721
  Serious: Yes (Disabling)
  Sender: FDA-Public Use
  Company Number: None

PATIENT
  Age: 67 Year
  Sex: Female
  Weight: 64.86 kg

DRUGS (2)
  1. PROLIA [Suspect]
     Active Substance: DENOSUMAB
     Indication: OSTEOPOROSIS
     Route: 058
  2. PROLIA [Suspect]
     Active Substance: DENOSUMAB
     Indication: FAMILIAL RISK FACTOR
     Route: 058

REACTIONS (1)
  - Atypical fracture [None]

NARRATIVE: CASE EVENT DATE: 20150201
